FAERS Safety Report 21182228 (Version 2)
Quarter: 2022Q3

REPORT INFORMATION
  Report Type: Report from Study
  Country: US (occurrence: US)
  Receive Date: 20220807
  Receipt Date: 20220903
  Transmission Date: 20221027
  Serious: Yes (Other)
  Sender: FDA-Public Use
  Company Number: US-HLS-202201284

PATIENT
  Age: 21 Year
  Sex: Male

DRUGS (6)
  1. CLOZAPINE [Suspect]
     Active Substance: CLOZAPINE
     Indication: Schizoaffective disorder
     Dosage: 100 MG IN AM AND 200 MG IN PM
     Route: 048
     Dates: start: 20220606, end: 20220727
  2. CLOZAPINE [Suspect]
     Active Substance: CLOZAPINE
     Indication: Product used for unknown indication
     Dosage: 100 MG IN AM AND 200 MG IN PM
     Route: 048
     Dates: start: 20220606, end: 20220727
  3. oepakote [Concomitant]
     Indication: Schizophrenia
     Route: 048
  4. welbutirin [Concomitant]
     Indication: Schizophrenia
     Route: 048
  5. PROLIXIN [Concomitant]
     Active Substance: FLUPHENAZINE HYDROCHLORIDE
     Indication: Schizophrenia
     Route: 048
  6. CYMBALTA [Concomitant]
     Active Substance: DULOXETINE HYDROCHLORIDE
     Indication: Schizophrenia
     Route: 065

REACTIONS (1)
  - Neutropenia [Unknown]

NARRATIVE: CASE EVENT DATE: 20220726
